FAERS Safety Report 15494461 (Version 1)
Quarter: 2018Q4

REPORT INFORMATION
  Report Type: Report from Study
  Country: PL (occurrence: PL)
  Receive Date: 20181012
  Receipt Date: 20181012
  Transmission Date: 20190205
  Serious: Yes (Hospitalization, Other)
  Sender: FDA-Public Use
  Company Number: PL-PFIZER INC-2016SF08081

PATIENT
  Age: 68 Year
  Sex: Female

DRUGS (14)
  1. ATRAM [Concomitant]
     Indication: HYPERTENSION
     Dosage: UNK
     Route: 048
  2. TRIFAS [TORASEMIDE] [Concomitant]
     Indication: HYPERTENSION
     Dosage: UNK
     Route: 048
     Dates: start: 20141121
  3. LANTUS [Concomitant]
     Active Substance: INSULIN GLARGINE
     Indication: DIABETES MELLITUS
     Dosage: 16 IU, UNK (16.0IU UNKNOWN)
     Route: 058
  4. BLINDED THERAPY [Suspect]
     Active Substance: INVESTIGATIONAL PRODUCT
     Indication: TYPE 2 DIABETES MELLITUS
     Dosage: UNK
     Route: 048
     Dates: start: 20140414
  5. POLOCARD [Concomitant]
     Active Substance: ASPIRIN
     Indication: ANGINA PECTORIS
     Dosage: UNK
     Route: 048
  6. APIDRA [Concomitant]
     Active Substance: INSULIN GLULISINE
     Indication: DIABETES MELLITUS
     Dosage: 32 IU, UNK (32.0IU UNKNOWN)
     Route: 058
  7. ZOCOR [Concomitant]
     Active Substance: SIMVASTATIN
     Indication: DIABETES MELLITUS
     Dosage: 20 MG, UNK (20.0MG UNKNOWN)
     Route: 048
  8. MEROPENEM. [Suspect]
     Active Substance: MEROPENEM
     Indication: URINARY TRACT INFECTION
     Dosage: UNK
     Route: 042
  9. CONTRACID [CIMETIDINE] [Concomitant]
     Indication: PROPHYLAXIS
     Dosage: UNK
     Route: 048
  10. AXTIL [Concomitant]
     Indication: HYPERTENSION
     Dosage: UNK
     Route: 048
  11. BETASERC [Concomitant]
     Active Substance: BETAHISTINE
     Indication: DIZZINESS
     Dosage: UNK
     Route: 048
     Dates: start: 20160530
  12. MILURIT [Concomitant]
     Active Substance: ALLOPURINOL
     Indication: ARTHRITIS
     Dosage: UNK
     Route: 048
     Dates: start: 20141121
  13. KALIPOZ [Concomitant]
     Active Substance: POTASSIUM CHLORIDE
     Indication: SUPPLEMENTATION THERAPY
     Dosage: UNK
     Route: 048
     Dates: start: 20141121
  14. SIOFOR [Concomitant]
     Active Substance: METFORMIN HYDROCHLORIDE
     Indication: DIABETES MELLITUS
     Dosage: 3000 MG, UNK (3000.0MG UNKNOWN)
     Route: 048
     Dates: start: 20141121

REACTIONS (4)
  - Benign neoplasm of bladder [Recovered/Resolved]
  - Acute kidney injury [Recovered/Resolved]
  - Urinary tract infection [Recovered/Resolved]
  - Atrial fibrillation [Not Recovered/Not Resolved]

NARRATIVE: CASE EVENT DATE: 20160707
